FAERS Safety Report 5375473-0 (Version None)
Quarter: 2007Q2

REPORT INFORMATION
  Report Type: 
  Country: None (occurrence: None)
  Receive Date: 20070629
  Receipt Date: 20070615
  Transmission Date: 20071010
  Serious: Yes (Death)
  Sender: FDA-Public Use
  Company Number: JP-ALLERGAN-0703954US

PATIENT
  Sex: Male

DRUGS (12)
  1. BOTULINUM TOXIN TYPE A - GENERAL [Suspect]
     Indication: TORTICOLLIS
     Dosage: 90 UNITS, SINGLE
     Route: 030
     Dates: start: 20070214, end: 20070214
  2. BOTULINUM TOXIN TYPE A - GENERAL [Suspect]
     Dosage: UNK, SINGLE
     Route: 030
     Dates: start: 20061108, end: 20061108
  3. LEVOCARNITINE HYDROCHLORIDE [Concomitant]
     Dates: start: 20021122, end: 20070416
  4. ZONISAMIDE [Concomitant]
     Dates: start: 20040607, end: 20070416
  5. TIZANIDINE HCL [Concomitant]
     Dates: start: 20000101, end: 20070416
  6. DIAZEPAM [Concomitant]
     Dates: start: 20000101, end: 20070416
  7. VALPROATE SODIUM [Concomitant]
     Dates: start: 20000101, end: 20070416
  8. TRIHEXYPHENIDYL HYDROCHLORIDE [Concomitant]
     Dates: start: 20040823, end: 20070416
  9. MOSAPRIDE CITRATE [Concomitant]
     Dates: start: 20041004, end: 20070416
  10. DANTROLENE SODIUM [Concomitant]
     Dates: start: 20070305, end: 20070416
  11. CHLORDIAZEPOXIDE [Concomitant]
     Dates: start: 20070205, end: 20070416
  12. TPN [Concomitant]
     Dates: start: 20070305, end: 20070416

REACTIONS (1)
  - CARDIO-RESPIRATORY ARREST [None]
